FAERS Safety Report 25659391 (Version 2)
Quarter: 2025Q3

REPORT INFORMATION
  Report Type: Spontaneous
  Country: EU (occurrence: EU)
  Receive Date: 20250808
  Receipt Date: 20250812
  Transmission Date: 20251021
  Serious: Yes (Life-Threatening, Hospitalization, Other)
  Sender: SANDOZ
  Company Number: EU-NOVPHSZ-PHHY2019RO196299

PATIENT
  Age: 33 Year
  Sex: Female

DRUGS (23)
  1. MYCOPHENOLATE MOFETIL [Suspect]
     Active Substance: MYCOPHENOLATE MOFETIL
     Indication: Immunosuppression
     Dosage: 1 G, Q12H
     Route: 065
  2. MYCOPHENOLATE MOFETIL [Suspect]
     Active Substance: MYCOPHENOLATE MOFETIL
     Indication: Renal transplant
     Dosage: 2 G, QD, 1G BID
     Route: 065
  3. MYCOPHENOLATE MOFETIL [Suspect]
     Active Substance: MYCOPHENOLATE MOFETIL
     Indication: Product used for unknown indication
  4. MYCOPHENOLATE MOFETIL [Suspect]
     Active Substance: MYCOPHENOLATE MOFETIL
     Indication: Transplant dysfunction
  5. PREDNISONE [Suspect]
     Active Substance: PREDNISONE
     Indication: Renal transplant
     Dosage: 5 MG, Q48H, EVERY 2 DAYS
     Route: 065
  6. PREDNISONE [Suspect]
     Active Substance: PREDNISONE
     Indication: Immunosuppression
     Route: 065
  7. PREDNISONE [Suspect]
     Active Substance: PREDNISONE
     Indication: Product used for unknown indication
  8. PREDNISONE [Suspect]
     Active Substance: PREDNISONE
     Indication: Transplant dysfunction
  9. TACROLIMUS [Suspect]
     Active Substance: TACROLIMUS
     Indication: Immunosuppression
     Dosage: 0.5 MG, Q12H
     Route: 065
  10. TACROLIMUS [Suspect]
     Active Substance: TACROLIMUS
     Indication: Renal transplant
     Dosage: 1 MG, QD, 0.5 MG, BID
     Route: 065
  11. TACROLIMUS [Suspect]
     Active Substance: TACROLIMUS
     Indication: Product used for unknown indication
  12. ENALAPRIL [Concomitant]
     Active Substance: ENALAPRIL
     Indication: Hypertension
     Dosage: 5 MG, QD
     Route: 065
  13. ERYTHROPOIETIN [Concomitant]
     Active Substance: ERYTHROPOIETIN
     Indication: Anaemia
     Dosage: 5000 IU, BIW
     Route: 065
  14. FUROSEMIDE [Concomitant]
     Active Substance: FUROSEMIDE
     Indication: Hypertension
     Dosage: 0.5 MG/KG, Q12H,  BID
     Route: 065
  15. MEROPENEM [Concomitant]
     Active Substance: MEROPENEM
     Indication: Pyrexia
     Route: 065
  16. MEROPENEM [Concomitant]
     Active Substance: MEROPENEM
     Indication: Dyspnoea
  17. MEROPENEM [Concomitant]
     Active Substance: MEROPENEM
     Indication: Infection
  18. METOPROLOL [Concomitant]
     Active Substance: METOPROLOL
     Indication: Hypertension
     Dosage: 50 MG, Q12H, BID
     Route: 065
  19. MOXONIDINE [Concomitant]
     Active Substance: MOXONIDINE
     Indication: Hypertension
     Dosage: 0.4 MG, Q12H,  BID
     Route: 065
  20. VORICONAZOLE [Concomitant]
     Active Substance: VORICONAZOLE
     Indication: Pyrexia
     Route: 065
  21. VORICONAZOLE [Concomitant]
     Active Substance: VORICONAZOLE
     Indication: Cough
  22. VORICONAZOLE [Concomitant]
     Active Substance: VORICONAZOLE
     Indication: Dyspnoea
  23. VORICONAZOLE [Concomitant]
     Active Substance: VORICONAZOLE
     Indication: Infection

REACTIONS (20)
  - Pneumonia fungal [Recovered/Resolved]
  - Immunosuppression [Unknown]
  - Dehydration [Unknown]
  - Sinus tachycardia [Unknown]
  - Haemoptysis [Unknown]
  - Rales [Unknown]
  - Stress [Unknown]
  - Pneumonia [Recovered/Resolved]
  - Rhinorrhoea [Unknown]
  - Productive cough [Unknown]
  - Pyrexia [Unknown]
  - Cough [Unknown]
  - Fungal infection [Recovered/Resolved]
  - Acute pulmonary oedema [Unknown]
  - Systemic inflammatory response syndrome [Recovered/Resolved]
  - Interstitial lung disease [Unknown]
  - Serositis [Unknown]
  - Urinary tract infection [Unknown]
  - Product use in unapproved indication [Unknown]
  - Overdose [Unknown]
